FAERS Safety Report 8927704 (Version 2)
Quarter: 2013Q1

REPORT INFORMATION
  Report Type: Spontaneous
  Country: JP (occurrence: JP)
  Receive Date: 20121127
  Receipt Date: 20130103
  Transmission Date: 20140127
  Serious: Yes (Other)
  Sender: FDA-Public Use
  Company Number: PHHY2012JP103119

PATIENT
  Sex: Female

DRUGS (8)
  1. CARBAMAZEPINE [Suspect]
     Indication: EPILEPSY
     Dosage: UNK
     Route: 048
  2. ETHOSUXIMIDE [Suspect]
     Route: 048
  3. ZONISAMIDE [Concomitant]
     Indication: EPILEPSY
     Route: 048
  4. SODIUM VALPROATE [Concomitant]
     Indication: EPILEPSY
     Route: 048
  5. CLOBAZAM [Concomitant]
     Indication: EPILEPSY
     Route: 048
  6. GABAPENTIN [Concomitant]
     Indication: EPILEPSY
     Route: 048
  7. PREDNISOLONE [Concomitant]
     Route: 042
  8. PREDNISOLONE [Concomitant]
     Dosage: UNK
     Route: 048

REACTIONS (15)
  - Grand mal convulsion [Unknown]
  - Loss of consciousness [Unknown]
  - Systemic lupus erythematosus [Recovered/Resolved]
  - Lupus-like syndrome [Recovered/Resolved]
  - Rash [Unknown]
  - Arthralgia [Unknown]
  - Pyrexia [Unknown]
  - Antinuclear antibody increased [Unknown]
  - Leukopenia [Unknown]
  - Lymphopenia [Unknown]
  - Hypocomplementaemia [Unknown]
  - Headache [Unknown]
  - Alopecia [Unknown]
  - Emotional disorder [Unknown]
  - Altered state of consciousness [Unknown]
